FAERS Safety Report 6424027-3 (Version None)
Quarter: 2009Q4

REPORT INFORMATION
  Report Type: 
  Country: None (occurrence: None)
  Receive Date: 20091102
  Receipt Date: 20091019
  Transmission Date: 20100525
  Serious: Yes (Hospitalization)
  Sender: FDA-Public Use
  Company Number: CA-MYLANLABS-2009S1018207

PATIENT
  Age: 72 Year
  Sex: Male

DRUGS (3)
  1. ETOPOSIDE [Suspect]
     Indication: SMALL CELL CARCINOMA
     Dosage: 100 MG/M2 ON DAYS 1-3 OF EVERY 21 DAY CYCLE
  2. CISPLATIN [Suspect]
     Indication: SMALL CELL CARCINOMA
     Dosage: 80 MG/M2 ON DAY 1 OF EVERY 21-DAY CYCLE
  3. CARBOPLATIN [Suspect]
     Indication: SMALL CELL CARCINOMA
     Dosage: AUC 6

REACTIONS (3)
  - INTESTINAL PERFORATION [None]
  - OEDEMA [None]
  - RENAL FAILURE [None]
